FAERS Safety Report 15584647 (Version 1)
Quarter: 2018Q4

REPORT INFORMATION
  Report Type: Spontaneous
  Country: US (occurrence: US)
  Receive Date: 20181101
  Receipt Date: 20181101
  Transmission Date: 20190205
  Serious: Yes (Death, Hospitalization)
  Sender: FDA-Public Use
  Company Number: None

PATIENT
  Age: 71 Year
  Sex: Male
  Weight: 80.74 kg

DRUGS (1)
  1. KYMRIAH [Suspect]
     Active Substance: TISAGENLECLEUCEL
     Dosage: ?          OTHER DOSE:2.8 X10E8 T-CELLS;?
     Route: 042
     Dates: start: 20180822

REACTIONS (8)
  - Cytokine release syndrome [None]
  - Metastatic lymphoma [None]
  - Delirium [None]
  - Mucormycosis [None]
  - Hypernatraemia [None]
  - Ascites [None]
  - Disease progression [None]
  - Liver function test increased [None]

NARRATIVE: CASE EVENT DATE: 20180823
